FAERS Safety Report 4996176-8 (Version None)
Quarter: 2006Q2

REPORT INFORMATION
  Report Type: 
  Country: None (occurrence: None)
  Receive Date: 20060504
  Receipt Date: 20060421
  Transmission Date: 20061013
  Serious: Yes (Other)
  Sender: FDA-Public Use
  Company Number: 2006056052

PATIENT
  Sex: Male

DRUGS (3)
  1. ZITHROMAX [Suspect]
     Indication: PNEUMONIA
     Dosage: 250 MG (250 MG, 1 IN 1 D)
  2. FUROSEMIDE [Concomitant]
  3. DIGOXIN [Concomitant]

REACTIONS (1)
  - ANGINA PECTORIS [None]
